FAERS Safety Report 4380725-7 (Version None)
Quarter: 2004Q2

REPORT INFORMATION
  Report Type: 
  Country: None (occurrence: None)
  Receive Date: 20040618
  Receipt Date: 20040525
  Transmission Date: 20050107
  Serious: Yes (Other)
  Sender: FDA-Public Use
  Company Number: PHNU2004DE01959

PATIENT
  Age: 22 Year
  Sex: Male

DRUGS (2)
  1. LEPONEX / CLOZARIL (CLOZAPINE) [Suspect]
     Indication: SCHIZOPHRENIA
     Route: 048
  2. RISPERDAL [Suspect]

REACTIONS (7)
  - COUGH [None]
  - DYSPNOEA [None]
  - LIFE SUPPORT [None]
  - MALIGNANT HISTIOCYTOSIS [None]
  - PNEUMONITIS [None]
  - PULMONARY FIBROSIS [None]
  - SUICIDE ATTEMPT [None]
